FAERS Safety Report 8506124-1 (Version None)
Quarter: 2012Q3

REPORT INFORMATION
  Report Type: 
  Country: None (occurrence: None)
  Receive Date: 20120712
  Receipt Date: 20120703
  Transmission Date: 20120928
  Serious: Yes (Other)
  Sender: FDA-Public Use
  Company Number: DE-ALEXION-A201201257

PATIENT
  Sex: Female

DRUGS (4)
  1. MYFORTIC [Concomitant]
     Indication: TRANSPLANT REJECTION
  2. PREDNISONE TAB [Concomitant]
     Indication: TRANSPLANT REJECTION
  3. SOLIRIS [Suspect]
     Indication: HAEMOLYTIC URAEMIC SYNDROME
     Dosage: UNK
     Route: 042
  4. SANDIMMUNE [Concomitant]
     Indication: TRANSPLANT REJECTION

REACTIONS (1)
  - VIITH NERVE PARALYSIS [None]
